FAERS Safety Report 9813509 (Version 2)
Quarter: 2014Q1

REPORT INFORMATION
  Report Type: Spontaneous
  Country: US (occurrence: US)
  Receive Date: 20140113
  Receipt Date: 20140211
  Transmission Date: 20141002
  Serious: Yes (Hospitalization, Other)
  Sender: FDA-Public Use
  Company Number: US-MERCK-1401USA003755

PATIENT
  Age: 46 Year
  Sex: Male

DRUGS (1)
  1. JANUVIA [Suspect]
     Indication: BLOOD GLUCOSE ABNORMAL
     Dosage: UNK
     Route: 048

REACTIONS (1)
  - Pancreatitis [Recovered/Resolved]
